FAERS Safety Report 11301276 (Version 1)
Quarter: 2015Q3

REPORT INFORMATION
  Report Type: Report from Study
  Country: CA (occurrence: None)
  Receive Date: 20150722
  Receipt Date: 20150722
  Transmission Date: 20151125
  Serious: Yes (Death, Other)
  Sender: FDA-Public Use
  Company Number: CA-2015VAL000463

PATIENT
  Age: 59 Year
  Sex: Female

DRUGS (7)
  1. LOPRESSOR [Suspect]
     Active Substance: METOPROLOL TARTRATE
     Indication: HYPERTENSION
     Route: 048
  2. ATIVAN [Concomitant]
     Active Substance: LORAZEPAM
  3. SANDOSTATIN LAR DEPOT [Suspect]
     Active Substance: OCTREOTIDE ACETATE
     Indication: NEUROENDOCRINE TUMOUR
     Route: 030
     Dates: start: 20080314, end: 20080915
  4. PROVERA (MEDROXYPROGESTERONE ACETATE) [Concomitant]
  5. AFINITOR [Suspect]
     Active Substance: EVEROLIMUS
     Indication: PANCREATIC NEUROENDOCRINE TUMOUR
     Dates: start: 20120417
  6. DIOVAN [Suspect]
     Active Substance: VALSARTAN
     Indication: PRODUCT USED FOR UNKNOWN INDICATION
     Route: 048
  7. ANAPROX (NAPROXEN SODIUM) [Concomitant]

REACTIONS (19)
  - Hyperglycaemia [None]
  - Mobility decreased [None]
  - Abdominal distension [None]
  - Malignant neoplasm progression [None]
  - Asthenia [None]
  - Injection site pain [None]
  - Blood pressure systolic increased [None]
  - Neuroendocrine tumour [None]
  - Injection site erythema [None]
  - Decreased appetite [None]
  - Swelling face [None]
  - Metastases to liver [None]
  - Injection site induration [None]
  - Dyspnoea [None]
  - Abdominal pain [None]
  - Muscular weakness [None]
  - Local swelling [None]
  - Dizziness [None]
  - Injection site warmth [None]
